FAERS Safety Report 6463201-7 (Version None)
Quarter: 2009Q4

REPORT INFORMATION
  Report Type: 
  Country: None (occurrence: None)
  Receive Date: 20091123
  Receipt Date: 20091113
  Transmission Date: 20100525
  Serious: Yes (Congenital Anomaly)
  Sender: FDA-Public Use
  Company Number: 2009SP036400

PATIENT

DRUGS (1)
  1. REBETOL [Suspect]
     Indication: PREGNANCY
     Dosage: ; TRPL
     Route: 064

REACTIONS (2)
  - GASTROINTESTINAL DISORDER CONGENITAL [None]
  - MATERNAL DRUGS AFFECTING FOETUS [None]
